FAERS Safety Report 6984670-X (Version None)
Quarter: 2010Q3

REPORT INFORMATION
  Report Type: 
  Country: None (occurrence: None)
  Receive Date: 20100914
  Receipt Date: 20100914
  Transmission Date: 20110219
  Serious: Yes (Other)
  Sender: FDA-Public Use
  Company Number: None

PATIENT
  Age: 54 Year
  Sex: Female

DRUGS (1)
  1. SENSODYNE DAILY TOOTHPASTE [Suspect]
     Indication: DENTAL DISORDER PROPHYLAXIS
     Dates: start: 20100903, end: 20100903

REACTIONS (4)
  - ACCIDENTAL EXPOSURE [None]
  - DYSPHAGIA [None]
  - TENDERNESS [None]
  - THROAT IRRITATION [None]
